FAERS Safety Report 13227671 (Version 2)
Quarter: 2017Q1

REPORT INFORMATION
  Report Type: Report from Study
  Country: None (occurrence: US)
  Receive Date: 20170213
  Receipt Date: 20170313
  Transmission Date: 20170428
  Serious: Yes (Hospitalization, Other)
  Sender: FDA-Public Use
  Company Number: US-ABBVIE-17K-163-1862910-00

PATIENT
  Age: 53 Year
  Sex: Male

DRUGS (3)
  1. HUMIRA [Suspect]
     Active Substance: ADALIMUMAB
     Route: 058
     Dates: start: 20161216
  2. HUMIRA [Suspect]
     Active Substance: ADALIMUMAB
     Dosage: DAY 15, STANDARD TITRATION
     Route: 058
     Dates: start: 20161202, end: 20161202
  3. HUMIRA [Suspect]
     Active Substance: ADALIMUMAB
     Indication: CROHN^S DISEASE
     Dosage: DAY 1, STANDARD TITRATION
     Route: 058
     Dates: start: 20161118, end: 20161118

REACTIONS (14)
  - Depressed mood [Unknown]
  - Haematochezia [Unknown]
  - Fatigue [Not Recovered/Not Resolved]
  - Pyrexia [Unknown]
  - Rectal haemorrhage [Unknown]
  - Night sweats [Unknown]
  - Migraine [Unknown]
  - Activities of daily living impaired [Unknown]
  - Abdominal pain [Recovered/Resolved]
  - Insomnia [Unknown]
  - Anal fistula [Unknown]
  - Anxiety [Unknown]
  - Depression [Unknown]
  - Anal abscess [Unknown]

NARRATIVE: CASE EVENT DATE: 2016
